FAERS Safety Report 18278900 (Version 1)
Quarter: 2020Q3

REPORT INFORMATION
  Report Type: Other
  Country: IT (occurrence: IT)
  Receive Date: 20200917
  Receipt Date: 20200917
  Transmission Date: 20201103
  Serious: Yes (Hospitalization)
  Sender: FDA-Public Use
  Company Number: IT-COLLEGIUM PHARMACEUTICAL, INC.-2020CGM00203

PATIENT
  Age: 49 Year
  Sex: Male

DRUGS (6)
  1. PARACETAMOL [Suspect]
     Active Substance: ACETAMINOPHEN
     Indication: NECK PAIN
     Dosage: 1 DF, 1X/DAY
     Route: 048
     Dates: start: 20200701
  2. NUCYNTA ER [Suspect]
     Active Substance: TAPENTADOL HYDROCHLORIDE
     Indication: NECK PAIN
     Dosage: 100 MG, 1X/DAY
     Route: 048
     Dates: start: 20200701
  3. NEBIVOLOL. [Concomitant]
     Active Substance: NEBIVOLOL
  4. MUSCORIL [Concomitant]
     Active Substance: THIOCOLCHICOSIDE
     Dosage: UNK
     Dates: start: 20200701
  5. RIVOTRIL [Concomitant]
     Active Substance: CLONAZEPAM
  6. TACHIDOL [Suspect]
     Active Substance: ACETAMINOPHEN\CODEINE PHOSPHATE
     Indication: NECK PAIN
     Dosage: 1 DF, 1X/DAY
     Route: 048
     Dates: start: 20200701

REACTIONS (4)
  - Constipation [Unknown]
  - Weight decreased [Unknown]
  - Neck pain [Unknown]
  - Drug abuse [Unknown]

NARRATIVE: CASE EVENT DATE: 20200701
